FAERS Safety Report 24114107 (Version 3)
Quarter: 2024Q3

REPORT INFORMATION
  Report Type: Report from Study
  Country: US (occurrence: US)
  Receive Date: 20240720
  Receipt Date: 20240808
  Transmission Date: 20241016
  Serious: Yes (Other)
  Sender: ABBVIE
  Company Number: US-ABBVIE-5845071

PATIENT
  Age: 39 Year
  Sex: Female

DRUGS (2)
  1. SKYRIZI [Suspect]
     Active Substance: RISANKIZUMAB-RZAA
     Indication: Psoriasis
     Route: 058
     Dates: start: 20230626, end: 202401
  2. SKYRIZI [Suspect]
     Active Substance: RISANKIZUMAB-RZAA
     Route: 058
     Dates: start: 202407, end: 202407

REACTIONS (4)
  - Foot deformity [Recovering/Resolving]
  - Arthralgia [Recovering/Resolving]
  - Osteopenia [Unknown]
  - Osteoporosis [Unknown]

NARRATIVE: CASE EVENT DATE: 20240401
